FAERS Safety Report 13778656 (Version 9)
Quarter: 2018Q2

REPORT INFORMATION
  Report Type: Spontaneous
  Country: US (occurrence: US)
  Receive Date: 20170721
  Receipt Date: 20180629
  Transmission Date: 20180711
  Serious: Yes (Hospitalization)
  Sender: FDA-Public Use
  Company Number: US-ACTELION-A-NJ2017-156990

PATIENT
  Age: 60 Year
  Sex: Female
  Weight: 60.77 kg

DRUGS (6)
  1. ALDACTONE [Concomitant]
     Active Substance: SPIRONOLACTONE
     Dosage: UNK
     Dates: start: 20010706
  2. OPSUMIT [Suspect]
     Active Substance: MACITENTAN
     Indication: PULMONARY HYPERTENSION
     Dosage: 10 MG, QD
     Route: 048
     Dates: start: 20170613, end: 20180207
  3. METOLAZONE. [Concomitant]
     Active Substance: METOLAZONE
  4. REMODULIN [Suspect]
     Active Substance: TREPROSTINIL
     Dosage: 28 NG/KG, PER MIN
     Route: 042
  5. REMODULIN [Suspect]
     Active Substance: TREPROSTINIL
     Indication: PULMONARY HYPERTENSION
     Dosage: 30 NG/KG, PER MIN
     Route: 042
     Dates: start: 20160819
  6. BUMEX [Concomitant]
     Active Substance: BUMETANIDE
     Dosage: UNK
     Dates: start: 20170706

REACTIONS (15)
  - Pulmonary hypertension [Recovered/Resolved]
  - Cardiac failure acute [Recovered/Resolved]
  - Orthopnoea [Recovered/Resolved]
  - Paracentesis [Unknown]
  - Weight increased [Recovered/Resolved]
  - Fluid retention [Unknown]
  - Fluid overload [Recovered/Resolved]
  - Brain natriuretic peptide increased [Recovered/Resolved]
  - Abdominal distension [Recovered/Resolved]
  - Treatment noncompliance [Unknown]
  - Concomitant disease aggravated [Recovered/Resolved]
  - Dyspnoea [Recovered/Resolved]
  - Peripheral swelling [Recovered/Resolved]
  - Blood creatinine increased [Recovered/Resolved]
  - Polydipsia [Unknown]

NARRATIVE: CASE EVENT DATE: 20171121
